FAERS Safety Report 21961491 (Version 2)
Quarter: 2023Q1

REPORT INFORMATION
  Report Type: Spontaneous
  Country: CA (occurrence: None)
  Receive Date: 20230207
  Receipt Date: 20230310
  Transmission Date: 20230417
  Serious: Yes (Hospitalization)
  Sender: FDA-Public Use
  Company Number: CA-Ultragenyx Pharmaceutical Inc.-CA-UGNX-23-00060

PATIENT
  Age: 2 Year
  Sex: Female

DRUGS (4)
  1. DOJOLVI [Suspect]
     Active Substance: TRIHEPTANOIN
     Indication: Very long-chain acyl-coenzyme A dehydrogenase deficiency
     Dosage: 9 ML, 4 TIMES DAILY WITH FEEDS, VIA G-TUBE
     Dates: start: 20230116
  2. DOJOLVI [Suspect]
     Active Substance: TRIHEPTANOIN
     Dosage: 5 ML THEN REDUCING TO 3ML 4 TIMES DAILY WITH FEEDS, VIA G-TUBE
     Dates: end: 20230120
  3. FER-INSOL [Concomitant]
     Indication: Iron deficiency
     Route: 048
  4. POLYETHYLENE GLYCOL 3350 [Concomitant]
     Active Substance: POLYETHYLENE GLYCOL 3350
     Indication: Constipation
     Dosage: 17 G POWDER DAILY VIA G-TUBE

REACTIONS (6)
  - Rhabdomyolysis [Recovered/Resolved]
  - Vomiting [Recovered/Resolved]
  - Vomiting [Recovered/Resolved]
  - Hospitalisation [Recovered/Resolved]
  - Abdominal pain [Recovered/Resolved]
  - Diarrhoea [Recovered/Resolved]

NARRATIVE: CASE EVENT DATE: 20230116
